FAERS Safety Report 19443237 (Version 1)
Quarter: 2021Q2

REPORT INFORMATION
  Report Type: Spontaneous
  Country: US (occurrence: US)
  Receive Date: 20210621
  Receipt Date: 20210621
  Transmission Date: 20210717
  Serious: No
  Sender: FDA-Public Use
  Company Number: US-PFIZER INC-2021291061

PATIENT
  Age: 76 Year
  Sex: Female
  Weight: 62 kg

DRUGS (1)
  1. PREMARIN [Suspect]
     Active Substance: ESTROGENS, CONJUGATED
     Indication: HORMONE REPLACEMENT THERAPY
     Dosage: 45 MG, 1X/DAY (IT^S A VERY LOW DOSE, HALF OF A .45 MG TABLET ONCE A DAY BY MOUTH )
     Route: 048

REACTIONS (3)
  - Anxiety [Unknown]
  - Alopecia [Unknown]
  - Intentional product use issue [Unknown]
